FAERS Safety Report 8193062-X (Version None)
Quarter: 2012Q1

REPORT INFORMATION
  Report Type: 
  Country: None (occurrence: None)
  Receive Date: 20120308
  Receipt Date: 20120228
  Transmission Date: 20120608
  Serious: Yes (Death, Hospitalization)
  Sender: FDA-Public Use
  Company Number: KZ-MILLENNIUM PHARMACEUTICALS, INC.-2012-01532

PATIENT

DRUGS (1)
  1. VELCADE [Suspect]
     Indication: MULTIPLE MYELOMA
     Dosage: 1.8 MG, UNK
     Route: 042
     Dates: start: 20120214, end: 20120224

REACTIONS (2)
  - PNEUMONIA [None]
  - ACUTE RESPIRATORY FAILURE [None]
